FAERS Safety Report 11294579 (Version 1)
Quarter: 2015Q3

REPORT INFORMATION
  Report Type: Spontaneous
  Country: US (occurrence: None)
  Receive Date: 20150722
  Receipt Date: 20150722
  Transmission Date: 20151125
  Serious: No
  Sender: FDA-Public Use
  Company Number: None

PATIENT
  Age: 47 Year
  Sex: Female

DRUGS (5)
  1. METFORMIN [Concomitant]
     Active Substance: METFORMIN HYDROCHLORIDE
  2. RIBAVIRIN 200MG TAB KADMON [Suspect]
     Active Substance: RIBAVIRIN
     Indication: HEPATITIS C
     Dosage: RIBAVIRIN 1000MG DAILY PO
     Route: 048
     Dates: start: 20150619
  3. GLIPIZIDE. [Concomitant]
     Active Substance: GLIPIZIDE
  4. PRAVASTATIN [Concomitant]
     Active Substance: PRAVASTATIN\PRAVASTATIN SODIUM
  5. SOVALDI [Suspect]
     Active Substance: SOFOSBUVIR
     Indication: HEPATITIS C
     Dosage: SOVALDI 400MG DAILY  PO
     Route: 048
     Dates: start: 20150619

REACTIONS (1)
  - Drug dose omission [None]

NARRATIVE: CASE EVENT DATE: 20150719
